FAERS Safety Report 9224825 (Version 1)
Quarter: 2013Q2

REPORT INFORMATION
  Report Type: Spontaneous
  Country: US (occurrence: None)
  Receive Date: 20130409
  Receipt Date: 20130409
  Transmission Date: 20140414
  Serious: Yes (Other)
  Sender: FDA-Public Use
  Company Number: KAD201304-000446

PATIENT
  Sex: Female

DRUGS (1)
  1. RIBAPAK [Suspect]

REACTIONS (7)
  - Asthenia [None]
  - Red blood cell count decreased [None]
  - Platelet count decreased [None]
  - Irritable bowel syndrome [None]
  - White blood cell count decreased [None]
  - Thyroid function test abnormal [None]
  - Blood count abnormal [None]
